FAERS Safety Report 4923399-6 (Version None)
Quarter: 2006Q1

REPORT INFORMATION
  Report Type: 
  Country: None (occurrence: None)
  Receive Date: 20060223
  Receipt Date: 20060223
  Transmission Date: 20060701
  Serious: Yes (Other)
  Sender: FDA-Public Use
  Company Number: None

PATIENT
  Age: 15 Year
  Sex: Male
  Weight: 47 kg

DRUGS (2)
  1. ZYVOX [Suspect]
     Indication: CELLULITIS
     Dosage: 600 MG Q 12 HR IV -} PO
     Route: 048
     Dates: start: 20050719, end: 20050722
  2. ZYVOX [Suspect]
     Indication: DISEASE RECURRENCE
     Dosage: 600 MG Q 12 HR IV -} PO
     Route: 048
     Dates: start: 20050719, end: 20050722

REACTIONS (2)
  - PALPITATIONS [None]
  - WANDERING PACEMAKER [None]
